FAERS Safety Report 24250782 (Version 1)
Quarter: 2024Q3

REPORT INFORMATION
  Report Type: Spontaneous
  Country: US (occurrence: US)
  Receive Date: 20240826
  Receipt Date: 20240826
  Transmission Date: 20241017
  Serious: No
  Sender: MEDEXUS PHARMA
  Company Number: US-MEDEXUS PHARMA, INC.-2024MED00130

PATIENT
  Age: 85 Year
  Sex: Female

DRUGS (2)
  1. RASUVO [Suspect]
     Active Substance: METHOTREXATE SODIUM
     Indication: Arthritis
     Dosage: 25 MG INJECTION ROTATED BETWEEN LEFT THIGH/RIGHT THIGH/RIGHT ABDOMEN/LEFT ABDOMEN, 1X/WEEK ON TUESDA
  2. 13 UNSPECIFIED MEDICATIONS [Concomitant]

REACTIONS (7)
  - Injection site bruising [Unknown]
  - Off label use [Not Recovered/Not Resolved]
  - Exposure via skin contact [Unknown]
  - Product dose omission issue [Unknown]
  - Device defective [Unknown]
  - Device leakage [Unknown]
  - Device malfunction [Unknown]

NARRATIVE: CASE EVENT DATE: 20240207
